FAERS Safety Report 20825551 (Version 1)
Quarter: 2022Q2

REPORT INFORMATION
  Report Type: Spontaneous
  Country: US (occurrence: US)
  Receive Date: 20220513
  Receipt Date: 20220513
  Transmission Date: 20220721
  Serious: Yes (Other)
  Sender: FDA-Public Use
  Company Number: US-BoehringerIngelheim-2022-BI-169711

PATIENT
  Age: 61 Year
  Sex: Female

DRUGS (2)
  1. NINTEDANIB [Suspect]
     Active Substance: NINTEDANIB
     Indication: Rheumatoid arthritis
  2. NINTEDANIB [Suspect]
     Active Substance: NINTEDANIB
     Indication: Interstitial lung disease

REACTIONS (4)
  - Cardiomyopathy [Recovered/Resolved]
  - Bifascicular block [Recovered/Resolved]
  - Cardiac failure [Recovered/Resolved]
  - Ejection fraction abnormal [Recovered/Resolved]
